FAERS Safety Report 9392378 (Version 2)
Quarter: 2013Q4

REPORT INFORMATION
  Report Type: Spontaneous
  Country: FR (occurrence: FR)
  Receive Date: 20130710
  Receipt Date: 20131009
  Transmission Date: 20140711
  Serious: Yes (Death)
  Sender: FDA-Public Use
  Company Number: FR-BRISTOL-MYERS SQUIBB COMPANY-19078120

PATIENT
  Age: 77 Year
  Sex: Male

DRUGS (9)
  1. COUMADINE [Suspect]
     Dates: start: 20130615
  2. HYDROCORTISONE [Suspect]
     Route: 048
     Dates: start: 20130612
  3. INEXIUM [Suspect]
     Dates: start: 20130612
  4. HEPARINE CHOAY [Suspect]
     Dates: start: 20130612
  5. BUDESONIDE [Suspect]
     Dates: start: 20130609
  6. CONTRAMAL [Suspect]
     Dates: start: 20130619
  7. MIMPARA [Suspect]
     Dates: start: 20130615
  8. MONO-TILDIEM LP [Suspect]
     Dosage: MONO TILDIEM LP 200 MG SUSTAINED RELEASE CAPSULE
     Dates: start: 20130611
  9. RENAGEL [Suspect]
     Dosage: RENAGEL 800 MG, FILM COATED TABLET
     Dates: start: 20130613

REACTIONS (2)
  - Hepatitis fulminant [Fatal]
  - Multi-organ failure [Fatal]
